FAERS Safety Report 23779075 (Version 1)
Quarter: 2024Q2

REPORT INFORMATION
  Report Type: Spontaneous
  Country: CA (occurrence: None)
  Receive Date: 20240424
  Receipt Date: 20240424
  Transmission Date: 20240716
  Serious: Yes (Hospitalization)
  Sender: FDA-Public Use
  Company Number: 2022A069537

PATIENT
  Age: 72 Year
  Sex: Female

DRUGS (6)
  1. FULVESTRANT [Suspect]
     Active Substance: FULVESTRANT
     Indication: PIK3CA-activated mutation
     Dates: start: 20210721
  2. FULVESTRANT [Suspect]
     Active Substance: FULVESTRANT
     Indication: Breast cancer female
     Dates: start: 20210721
  3. FULVESTRANT [Suspect]
     Active Substance: FULVESTRANT
     Indication: PIK3CA-activated mutation
     Route: 048
     Dates: start: 20210721
  4. FULVESTRANT [Suspect]
     Active Substance: FULVESTRANT
     Indication: Breast cancer female
     Route: 048
     Dates: start: 20210721
  5. PIQRAY [Suspect]
     Active Substance: ALPELISIB
     Indication: PIK3CA-activated mutation
     Route: 048
     Dates: start: 20210721
  6. PIQRAY [Suspect]
     Active Substance: ALPELISIB
     Indication: Breast cancer female
     Route: 048
     Dates: start: 20210721

REACTIONS (4)
  - Blood glucose decreased [Unknown]
  - Brain neoplasm [Unknown]
  - Seizure [Unknown]
  - Weight decreased [Unknown]
